FAERS Safety Report 8340388-2 (Version None)
Quarter: 2012Q2

REPORT INFORMATION
  Report Type: 
  Country: None (occurrence: None)
  Receive Date: 20120507
  Receipt Date: 20120426
  Transmission Date: 20120825
  Serious: Yes (Other)
  Sender: FDA-Public Use
  Company Number: HR-ASTRAZENECA-2012SE27589

PATIENT
  Age: 72 Year
  Sex: Female
  Weight: 70 kg

DRUGS (6)
  1. PLENDIL [Suspect]
     Indication: HYPERTENSION
     Route: 048
     Dates: start: 20120214, end: 20120216
  2. CRESTOR [Concomitant]
     Indication: HYPERLIPIDAEMIA
     Route: 048
     Dates: start: 20110501
  3. XYZAL [Concomitant]
     Indication: HYPERSENSITIVITY
     Route: 048
  4. TRAVOPROST AND TIMOLOL [Concomitant]
     Indication: GLAUCOMA
     Route: 031
  5. FAMOSAN [Concomitant]
     Indication: SKIN ULCER
     Route: 048
  6. ATENOLOL [Concomitant]
     Indication: MYOCARDIAL ISCHAEMIA
     Route: 048

REACTIONS (3)
  - DISCOMFORT [None]
  - DRUG INTOLERANCE [None]
  - ERYTHEMA [None]
